FAERS Safety Report 21531739 (Version 2)
Quarter: 2022Q4

REPORT INFORMATION
  Report Type: Spontaneous
  Country: FR (occurrence: FR)
  Receive Date: 20221031
  Receipt Date: 20221213
  Transmission Date: 20230112
  Serious: No
  Sender: FDA-Public Use
  Company Number: None

PATIENT
  Age: 2 Year
  Sex: Male
  Weight: 16 kg

DRUGS (4)
  1. VIRAMUNE [Suspect]
     Active Substance: NEVIRAPINE
     Indication: Accidental exposure to product by child
     Route: 048
     Dates: start: 20210219, end: 20210219
  2. ABACAVIR\LAMIVUDINE [Suspect]
     Active Substance: ABACAVIR\LAMIVUDINE
     Indication: Accidental exposure to product by child
     Dosage: UNIT DOSE- 1 DOSAGE FORM
     Route: 048
     Dates: start: 20210219, end: 20210219
  3. HYDROCHLOROTHIAZIDE\IRBESARTAN [Suspect]
     Active Substance: HYDROCHLOROTHIAZIDE\IRBESARTAN
     Indication: Accidental exposure to product by child
     Dosage: UNIT DOSE- 1 DOSAGE FORM
     Route: 048
     Dates: start: 20210219, end: 20210219
  4. LERCANIDIPINE HYDROCHLORIDE [Suspect]
     Active Substance: LERCANIDIPINE HYDROCHLORIDE
     Indication: Accidental exposure to product by child
     Route: 048
     Dates: start: 20210219, end: 20210219

REACTIONS (3)
  - Accidental overdose [Recovered/Resolved]
  - Accidental exposure to product by child [Recovered/Resolved]
  - Ocular hyperaemia [Recovered/Resolved]

NARRATIVE: CASE EVENT DATE: 20210219
